FAERS Safety Report 5805124-X (Version None)
Quarter: 2008Q3

REPORT INFORMATION
  Report Type: 
  Country: None (occurrence: None)
  Receive Date: 20080707
  Receipt Date: 20080627
  Transmission Date: 20090109
  Serious: Yes (Other)
  Sender: FDA-Public Use
  Company Number: 163-20785-08061812

PATIENT
  Age: 58 Year
  Sex: Male

DRUGS (6)
  1. THALOMID [Suspect]
     Indication: MULTIPLE MYELOMA
     Dosage: 200 MG, 1 IN 1 D, ORAL; 150 MG, 1 IN 1 D, ORAL
     Route: 048
     Dates: start: 20071019, end: 20080601
  2. THALOMID [Suspect]
     Indication: MULTIPLE MYELOMA
     Dosage: 200 MG, 1 IN 1 D, ORAL; 150 MG, 1 IN 1 D, ORAL
     Route: 048
     Dates: start: 20071010
  3. EPOGEN [Concomitant]
  4. DECADRON [Concomitant]
  5. ASPIRIN [Concomitant]
  6. PRILOSEC [Concomitant]

REACTIONS (2)
  - DRUG TOXICITY [None]
  - MUSCLE ATROPHY [None]
